FAERS Safety Report 5946308-X (Version None)
Quarter: 2008Q4

REPORT INFORMATION
  Report Type: 
  Country: None (occurrence: None)
  Receive Date: 20081110
  Receipt Date: 20081105
  Transmission Date: 20090506
  Serious: Yes (Other)
  Sender: FDA-Public Use
  Company Number: JP-BRACCO-001023

PATIENT
  Age: 71 Year
  Sex: Male

DRUGS (14)
  1. IOPAMIDOL [Suspect]
     Indication: COMPUTERISED TOMOGRAM
     Dosage: 3 ML/SEC
     Route: 042
     Dates: start: 20080719, end: 20080719
  2. IOPAMIDOL [Suspect]
     Indication: BILE DUCT STONE
     Dosage: 3 ML/SEC
     Route: 042
     Dates: start: 20080719, end: 20080719
  3. SAXIZON [Concomitant]
     Route: 042
     Dates: start: 20080722, end: 20080722
  4. NEO-MINOPHAGEN C [Concomitant]
     Route: 042
     Dates: start: 20080722, end: 20080722
  5. SEISHOKU [Concomitant]
     Route: 042
     Dates: start: 20080722, end: 20080722
  6. VALTREX [Concomitant]
     Route: 065
     Dates: start: 20080724
  7. LOXOPROFEN SODIUM [Concomitant]
     Route: 048
     Dates: start: 20080719
  8. CELESTAMINE                        /00252801/ [Concomitant]
     Route: 065
     Dates: start: 20080722
  9. OXAROL [Concomitant]
     Indication: PSORIASIS
     Route: 062
     Dates: start: 20060801
  10. ANTEBATE [Concomitant]
     Indication: PSORIASIS
     Route: 062
  11. MUCOSTA [Concomitant]
     Route: 065
     Dates: start: 20080724
  12. CYANOCOBALAMIN [Concomitant]
     Route: 065
     Dates: start: 20080724
  13. GENTACIN [Concomitant]
     Route: 065
     Dates: start: 20080724
  14. LOXOPROFEN SODIUM [Concomitant]
     Route: 065
     Dates: start: 20080722

REACTIONS (1)
  - HERPES ZOSTER [None]
